FAERS Safety Report 7543936-5 (Version None)
Quarter: 2011Q2

REPORT INFORMATION
  Report Type: 
  Country: None (occurrence: None)
  Receive Date: 20110613
  Receipt Date: 20110531
  Transmission Date: 20111010
  Serious: Yes (Disabling)
  Sender: FDA-Public Use
  Company Number: PHHY2011IT47367

PATIENT
  Sex: Female

DRUGS (4)
  1. ZOMETA [Suspect]
     Indication: METASTASES TO BONE
     Dosage: UNK
     Route: 042
     Dates: start: 20050701, end: 20070815
  2. FULVESTRANT [Concomitant]
     Indication: METASTASES TO BONE
     Dosage: 250 MG DOSAGE
  3. IBANDRONATE SODIUM [Suspect]
     Indication: METASTASES TO BONE
     Dosage: UNK
     Route: 042
     Dates: start: 20070816, end: 20090815
  4. ANASTROZOLE [Concomitant]
     Dosage: UNK
     Dates: end: 20090801

REACTIONS (3)
  - OSTEONECROSIS OF JAW [None]
  - CARDIOTOXICITY [None]
  - PRIMARY SEQUESTRUM [None]
